FAERS Safety Report 7964191-8 (Version None)
Quarter: 2011Q4

REPORT INFORMATION
  Report Type: 
  Country: None (occurrence: None)
  Receive Date: 20111121
  Receipt Date: 20110729
  Transmission Date: 20120403
  Serious: No
  Sender: FDA-Public Use
  Company Number: 1000022568

PATIENT
  Age: 73 Year
  Sex: Male

DRUGS (7)
  1. TRIAZOLAM [Concomitant]
  2. VIIBRYD [Suspect]
     Indication: DEPRESSION
     Dosage: 10 MG (10 MG, 1 IN 1 D),ORAL
     Route: 048
     Dates: start: 20110701, end: 20110701
  3. VIIBRYD [Suspect]
     Indication: DEPRESSION
     Dosage: 20 MG (20 MG, 1 IN 1 D),ORAL
     Route: 048
     Dates: start: 20110701, end: 20110701
  4. VIIBRYD [Suspect]
     Indication: DEPRESSION
     Dosage: 10 MG (10 MG, 1 IN 1 D),ORAL
     Route: 048
     Dates: start: 20110701, end: 20110728
  5. LAMOTRIGINE [Concomitant]
  6. DILTIAZEM (DILTIAZEM HYDROCHLORIDE)(DILTIAZEM HYDROCHLORIDE) [Concomitant]
  7. ALPRAZOLAM [Concomitant]

REACTIONS (9)
  - SENSORY DISTURBANCE [None]
  - HEAT EXHAUSTION [None]
  - ANXIETY [None]
  - TREMOR [None]
  - PAIN [None]
  - FATIGUE [None]
  - COLD SWEAT [None]
  - PANIC DISORDER [None]
  - MASTOIDITIS [None]
